FAERS Safety Report 13010131 (Version 2)
Quarter: 2017Q1

REPORT INFORMATION
  Report Type: Report from Study
  Country: US (occurrence: US)
  Receive Date: 20161208
  Receipt Date: 20170330
  Transmission Date: 20170428
  Serious: Yes (Other)
  Sender: FDA-Public Use
  Company Number: US-JNJFOC-20161206239

PATIENT
  Age: 81 Year
  Sex: Male

DRUGS (11)
  1. TERAZOSIN [Concomitant]
     Active Substance: TERAZOSIN\TERAZOSIN HYDROCHLORIDE
  2. VITAMIN B12 [Concomitant]
     Active Substance: CYANOCOBALAMIN
  3. ZOCOR [Concomitant]
     Active Substance: SIMVASTATIN
  4. WARFARIN [Concomitant]
     Active Substance: WARFARIN
  5. IRON [Concomitant]
     Active Substance: IRON
  6. RITUXIMAB [Concomitant]
     Active Substance: RITUXIMAB
  7. IMBRUVICA [Suspect]
     Active Substance: IBRUTINIB
     Indication: WALDENSTROM^S MACROGLOBULINAEMIA
     Route: 048
     Dates: start: 20160819
  8. GABAPENTIN. [Concomitant]
     Active Substance: GABAPENTIN
  9. METOPROLOL. [Concomitant]
     Active Substance: METOPROLOL
  10. BENDAMUSTINE [Concomitant]
     Active Substance: BENDAMUSTINE
  11. LISINOPRIL. [Concomitant]
     Active Substance: LISINOPRIL

REACTIONS (3)
  - Rectal haemorrhage [Recovered/Resolved]
  - Haemorrhoids [Unknown]
  - Diverticulum [Unknown]

NARRATIVE: CASE EVENT DATE: 20161130
